FAERS Safety Report 4641965-2 (Version None)
Quarter: 2005Q2

REPORT INFORMATION
  Report Type: 
  Country: None (occurrence: None)
  Receive Date: 20050420
  Receipt Date: 20050408
  Transmission Date: 20051028
  Serious: Yes (Hospitalization, Other)
  Sender: FDA-Public Use
  Company Number: KII-2005-0015990

PATIENT
  Age: 35 Year
  Sex: Male

DRUGS (5)
  1. HYDROMORPHONE HCL [Suspect]
     Indication: PAIN
     Dosage: ORAL
     Route: 048
  2. OTHER HYPNOTICS AND SEDATIVES [Suspect]
     Indication: PAIN
     Dosage: ORAL
     Route: 048
  3. AMITRIPTYLINE HCL [Suspect]
     Indication: PAIN
     Dosage: ORAL
     Route: 048
  4. SSRI [Suspect]
     Indication: PAIN
     Dosage: ORAL
     Route: 048
  5. CARISOPRODOL [Suspect]
     Indication: PAIN
     Dosage: ORAL
     Route: 048

REACTIONS (5)
  - AGITATION [None]
  - BODY TEMPERATURE INCREASED [None]
  - COMA [None]
  - CONFUSIONAL STATE [None]
  - WHITE BLOOD CELL COUNT INCREASED [None]
